FAERS Safety Report 19854867 (Version 1)
Quarter: 2021Q3

REPORT INFORMATION
  Report Type: Spontaneous
  Country: US (occurrence: US)
  Receive Date: 20210918
  Receipt Date: 20210918
  Transmission Date: 20211014
  Serious: Yes (Disabling)
  Sender: FDA-Public Use
  Company Number: None

PATIENT
  Age: 18 Year
  Sex: Female
  Weight: 51.75 kg

DRUGS (3)
  1. TRIAMCINOLONE  0.1% [Suspect]
     Active Substance: TRIAMCINOLONE
     Indication: ECZEMA
     Dosage: ?          QUANTITY:1 OUNCE(S);?
     Route: 061
     Dates: start: 20130205, end: 20210505
  2. VITAMIN B12 [Concomitant]
     Active Substance: CYANOCOBALAMIN
  3. D3 GUMMIES [Concomitant]

REACTIONS (11)
  - Steroid withdrawal syndrome [None]
  - Skin reaction [None]
  - Dermatitis atopic [None]
  - Erythema [None]
  - Lymphadenopathy [None]
  - Exposure during pregnancy [None]
  - Bedridden [None]
  - Condition aggravated [None]
  - Skin exfoliation [None]
  - Cold sweat [None]
  - Maternal exposure during breast feeding [None]

NARRATIVE: CASE EVENT DATE: 20210515
